FAERS Safety Report 19757992 (Version 3)
Quarter: 2021Q3

REPORT INFORMATION
  Report Type: Report from Study
  Country: US (occurrence: US)
  Receive Date: 20210827
  Receipt Date: 20210831
  Transmission Date: 20211014
  Serious: No
  Sender: FDA-Public Use
  Company Number: NVSC2021US193892

PATIENT
  Sex: Female

DRUGS (1)
  1. ENTRESTO [Suspect]
     Active Substance: SACUBITRIL\VALSARTAN
     Indication: PRODUCT USED FOR UNKNOWN INDICATION
     Dosage: 1 DF, BID(97/103MG)
     Route: 048
     Dates: start: 2021

REACTIONS (3)
  - Nocturia [Not Recovered/Not Resolved]
  - Energy increased [Recovering/Resolving]
  - Dry mouth [Unknown]
